FAERS Safety Report 9369725 (Version 1)
Quarter: 2013Q2

REPORT INFORMATION
  Report Type: Spontaneous
  Country: US (occurrence: US)
  Receive Date: 20130626
  Receipt Date: 20130626
  Transmission Date: 20140414
  Serious: No
  Sender: FDA-Public Use
  Company Number: US-JNJFOC-20130613739

PATIENT
  Age: 16 Year
  Sex: Female

DRUGS (2)
  1. INVEGA [Suspect]
     Indication: MAJOR DEPRESSION
     Route: 048
     Dates: start: 201306
  2. INVEGA [Suspect]
     Indication: MAJOR DEPRESSION
     Route: 048
     Dates: end: 201306

REACTIONS (1)
  - Gynaecomastia [Unknown]
